FAERS Safety Report 6759285-9 (Version None)
Quarter: 2010Q2

REPORT INFORMATION
  Report Type: 
  Country: None (occurrence: None)
  Receive Date: 20100607
  Receipt Date: 20100527
  Transmission Date: 20101027
  Serious: Yes (Hospitalization, Other)
  Sender: FDA-Public Use
  Company Number: US-PFIZER INC-2010068514

PATIENT
  Sex: Female
  Weight: 78.005 kg

DRUGS (5)
  1. AROMASIN [Suspect]
     Indication: BREAST CANCER
     Dosage: 25 MG, 1X/DAY
     Route: 048
     Dates: start: 20100101, end: 20100515
  2. PROPRANOLOL [Concomitant]
     Dosage: 60 MG, UNK
  3. ENALAPRIL [Concomitant]
     Dosage: 5 MG, 2X/DAY
  4. LEVOTHYROXINE [Concomitant]
     Dosage: 75 UG, 1X/DAY
  5. ATIVAN [Concomitant]
     Dosage: 1 MG, AS NEEDED

REACTIONS (4)
  - BLOOD CREATININE INCREASED [None]
  - CARCINOEMBRYONIC ANTIGEN INCREASED [None]
  - CEREBROVASCULAR ACCIDENT [None]
  - TUMOUR MARKER INCREASED [None]
